FAERS Safety Report 25117360 (Version 1)
Quarter: 2025Q1

REPORT INFORMATION
  Report Type: Spontaneous
  Country: TR (occurrence: TR)
  Receive Date: 20250325
  Receipt Date: 20250325
  Transmission Date: 20250409
  Serious: Yes (Other)
  Sender: MACLEODS
  Company Number: TR-MLMSERVICE-20250306-PI438079-00201-1

PATIENT

DRUGS (4)
  1. LIDOCAINE [Suspect]
     Active Substance: LIDOCAINE
     Indication: Local anaesthesia
     Route: 065
  2. LIDOCAINE [Suspect]
     Active Substance: LIDOCAINE
     Indication: Nerve block
  3. PRILOCAINE [Suspect]
     Active Substance: PRILOCAINE
     Indication: Local anaesthesia
     Route: 065
  4. PRILOCAINE [Suspect]
     Active Substance: PRILOCAINE
     Indication: Nerve block

REACTIONS (3)
  - Myoclonus [Recovered/Resolved]
  - Hypertension [Unknown]
  - Sleep disorder [Unknown]
